FAERS Safety Report 8691817 (Version 4)
Quarter: 2012Q4

REPORT INFORMATION
  Report Type: 
  Country: US (occurrence: US)
  Receive Date: 20120730
  Receipt Date: 20120918
  Transmission Date: 20130627
  Serious: No
  Sender: FDA-Public Use
  Company Number: US-PFIZER INC-2012179440

PATIENT
  Age: 35 Year
  Sex: Male
  Weight: 53 kg

DRUGS (2)
  1. PROTONIX [Suspect]
     Indication: GASTROINTESTINAL HAEMORRHAGE
     Dosage: 40 mg, 1x/day
     Route: 048
     Dates: start: 20120604
  2. PROTONIX [Suspect]
     Indication: GASTROOESOPHAGEAL REFLUX DISEASE
     Dosage: 40 mg, 1x/day
     Dates: end: 20120726

REACTIONS (2)
  - Device occlusion [Recovered/Resolved]
  - Product size issue [Recovered/Resolved]
